FAERS Safety Report 17118866 (Version 1)
Quarter: 2019Q4

REPORT INFORMATION
  Report Type: Spontaneous
  Country: US (occurrence: US)
  Receive Date: 20191206
  Receipt Date: 20191206
  Transmission Date: 20200122
  Serious: No
  Sender: FDA-Public Use
  Company Number: US-UCBSA-2017036777

PATIENT
  Sex: Female
  Weight: 54.4 kg

DRUGS (3)
  1. NEUPRO [Suspect]
     Active Substance: ROTIGOTINE
     Indication: PARKINSON^S DISEASE
     Dosage: 0.5 MG FOR ONE WEEK
     Dates: start: 201708, end: 201708
  2. NEUPRO [Suspect]
     Active Substance: ROTIGOTINE
     Dosage: 1 MG PATCH
     Dates: start: 201708, end: 201709
  3. LEVODOPA/CARBIDOPA [Concomitant]
     Active Substance: CARBIDOPA\LEVODOPA
     Indication: PRODUCT USED FOR UNKNOWN INDICATION
     Dosage: (25/100), 2X/DAY (BID)
     Dates: start: 2013

REACTIONS (6)
  - Urinary incontinence [Recovered/Resolved]
  - Drug ineffective [Unknown]
  - Intentional product misuse [Unknown]
  - Anal incontinence [Recovered/Resolved]
  - Orthostatic hypotension [Recovered/Resolved]
  - Loss of consciousness [Recovered/Resolved]

NARRATIVE: CASE EVENT DATE: 2017
